FAERS Safety Report 7999169-1 (Version None)
Quarter: 2011Q4

REPORT INFORMATION
  Report Type: 
  Country: None (occurrence: None)
  Receive Date: 20111216
  Receipt Date: 20111209
  Transmission Date: 20120403
  Serious: Yes (Hospitalization)
  Sender: FDA-Public Use
  Company Number: OSCN-PR-1112L-0237

PATIENT
  Age: 52 Year
  Sex: Male

DRUGS (8)
  1. CLONIDINE (CLONDIINE) [Concomitant]
  2. LEVOTHYROXINE SODIUM [Concomitant]
  3. ASPIRIN [Concomitant]
  4. OMNISCAN [Suspect]
     Indication: PRODUCT USED FOR UNKNOWN INDICATION
  5. METOPROLOL TARTRATE [Concomitant]
  6. CALCITRIOL [Concomitant]
  7. NPH INSULIN (ISOPHANE INSULIN) [Concomitant]
  8. AMLODIPINE [Concomitant]

REACTIONS (6)
  - SUDDEN CARDIAC DEATH [None]
  - BLOOD THYROID STIMULATING HORMONE INCREASED [None]
  - NEPHROGENIC SYSTEMIC FIBROSIS [None]
  - THYROXINE FREE DECREASED [None]
  - MALABSORPTION [None]
  - URINARY TRACT INFECTION [None]
